FAERS Safety Report 24101338 (Version 1)
Quarter: 2024Q3

REPORT INFORMATION
  Report Type: Spontaneous
  Country: US (occurrence: US)
  Receive Date: 20240717
  Receipt Date: 20240717
  Transmission Date: 20241017
  Serious: No
  Sender: NOVO NORDISK
  Company Number: US-NOVOPROD-1149804

PATIENT
  Age: 73 Year
  Sex: Female

DRUGS (1)
  1. OZEMPIC [Suspect]
     Active Substance: SEMAGLUTIDE
     Indication: Type 2 diabetes mellitus
     Dosage: 1 MG
     Route: 058
     Dates: start: 20220630

REACTIONS (4)
  - Weight increased [Not Recovered/Not Resolved]
  - Blood glucose increased [Not Recovered/Not Resolved]
  - Device leakage [Recovered/Resolved]
  - Incorrect dose administered by product [Not Recovered/Not Resolved]

NARRATIVE: CASE EVENT DATE: 20231206
